FAERS Safety Report 6273426-1 (Version None)
Quarter: 2009Q3

REPORT INFORMATION
  Report Type: 
  Country: None (occurrence: None)
  Receive Date: 20090720
  Receipt Date: 20090715
  Transmission Date: 20100115
  Serious: Yes (Hospitalization)
  Sender: FDA-Public Use
  Company Number: FR-WYE-G04055509

PATIENT
  Sex: Female

DRUGS (8)
  1. ADVIL [Suspect]
     Indication: HEADACHE
     Dosage: ^SEVERAL INTAKES^
     Route: 048
     Dates: start: 20090522, end: 20090522
  2. ADVIL [Suspect]
     Indication: PYREXIA
  3. HYDROCORTISONE [Concomitant]
     Dosage: 17.5 MG TOTAL DAILY
     Route: 048
  4. GENOTONORM [Concomitant]
     Route: 058
     Dates: start: 20080901
  5. MINIRIN [Concomitant]
     Dosage: 1 SPRAY IN THE MORNINGS, 0.2 MG IN THE EVENINGS
     Route: 045
  6. IMPORTAL [Concomitant]
     Dosage: 2 SACHETS TOTAL DAILY
     Route: 048
  7. DOLIPRANE [Concomitant]
     Dosage: ^SEVERAL INTAKES^
     Route: 048
     Dates: start: 20090522, end: 20090522
  8. LEVOTHYROX [Concomitant]
     Dosage: 50 ?G TOTAL DAILY
     Route: 048

REACTIONS (2)
  - BACK PAIN [None]
  - RENAL FAILURE ACUTE [None]
